FAERS Safety Report 10310464 (Version 1)
Quarter: 2014Q3

REPORT INFORMATION
  Report Type: Spontaneous
  Country: US (occurrence: None)
  Receive Date: 20140716
  Receipt Date: 20140716
  Transmission Date: 20150326
  Serious: Yes (Hospitalization)
  Sender: FDA-Public Use
  Company Number: None

PATIENT
  Age: 9 Year
  Sex: Female
  Weight: 39.1 kg

DRUGS (4)
  1. MERCAPTOPURINE. [Suspect]
     Active Substance: MERCAPTOPURINE
  2. DEXAMETHASONE. [Suspect]
     Active Substance: DEXAMETHASONE
  3. VINCRISTINE SULFATE. [Suspect]
     Active Substance: VINCRISTINE SULFATE
  4. METHOTREXATE [Suspect]
     Active Substance: METHOTREXATE
     Route: 037

REACTIONS (15)
  - Septic shock [None]
  - Agitation [None]
  - Platelet count decreased [None]
  - Haemoglobin decreased [None]
  - Staphylococcus test positive [None]
  - Pulmonary haemorrhage [None]
  - Paronychia [None]
  - Respiratory distress [None]
  - Adrenal haemorrhage [None]
  - Lactic acidosis [None]
  - Neutropenia [None]
  - Otitis media acute [None]
  - Pneumonia [None]
  - Cardiac arrest [None]
  - Haemoptysis [None]

NARRATIVE: CASE EVENT DATE: 20140616
